FAERS Safety Report 7972299-6 (Version None)
Quarter: 2011Q4

REPORT INFORMATION
  Report Type: 
  Country: None (occurrence: None)
  Receive Date: 20111213
  Receipt Date: 20111205
  Transmission Date: 20120403
  Serious: No
  Sender: FDA-Public Use
  Company Number: US-BIOGENIDEC-2011BI020327

PATIENT
  Age: 33 Year
  Sex: Female

DRUGS (3)
  1. SYNTHROID [Concomitant]
     Indication: HYPOTHYROIDISM
  2. AVONEX [Concomitant]
     Indication: MULTIPLE SCLEROSIS
     Route: 030
  3. TYSABRI [Suspect]
     Indication: MULTIPLE SCLEROSIS
     Route: 042
     Dates: start: 20110113

REACTIONS (6)
  - GAIT DISTURBANCE [None]
  - WEIGHT INCREASED [None]
  - INSOMNIA [None]
  - BONE DENSITY ABNORMAL [None]
  - HYPOAESTHESIA [None]
  - URINARY INCONTINENCE [None]
